FAERS Safety Report 24331421 (Version 1)
Quarter: 2024Q3

REPORT INFORMATION
  Report Type: Spontaneous
  Country: US (occurrence: US)
  Receive Date: 20240918
  Receipt Date: 20240918
  Transmission Date: 20241016
  Serious: Yes (Other)
  Sender: ALEXION PHARMACEUTICALS
  Company Number: US-AstraZeneca-CH-00707686A

PATIENT
  Sex: Female
  Weight: 63.946 kg

DRUGS (2)
  1. ULTOMIRIS [Suspect]
     Active Substance: RAVULIZUMAB-CWVZ
     Indication: Paroxysmal nocturnal haemoglobinuria
     Dosage: UNK
     Route: 042
  2. VOYDEYA [Suspect]
     Active Substance: DANICOPAN
     Indication: Paroxysmal nocturnal haemoglobinuria
     Dosage: 150 MILLIGRAM, TID
     Route: 048
     Dates: start: 202207

REACTIONS (12)
  - Intravascular haemolysis [Recovered/Resolved]
  - Fatigue [Recovering/Resolving]
  - Chromaturia [Recovering/Resolving]
  - Musculoskeletal pain [Recovering/Resolving]
  - Muscle spasms [Recovering/Resolving]
  - Blood potassium decreased [Recovering/Resolving]
  - Blood chloride decreased [Recovering/Resolving]
  - Blood sodium increased [Recovering/Resolving]
  - Blood urea increased [Recovering/Resolving]
  - Brain fog [Recovering/Resolving]
  - Haemoglobin decreased [Recovering/Resolving]
  - Renal pain [Recovering/Resolving]
